FAERS Safety Report 25020753 (Version 4)
Quarter: 2025Q2

REPORT INFORMATION
  Report Type: Spontaneous
  Country: US (occurrence: US)
  Receive Date: 20250227
  Receipt Date: 20250530
  Transmission Date: 20250717
  Serious: No
  Sender: DAIICHI
  Company Number: US-DAIICHI SANKYO, INC.-DS-2025-127394-USAA

PATIENT
  Sex: Male

DRUGS (1)
  1. TURALIO [Suspect]
     Active Substance: PEXIDARTINIB HYDROCHLORIDE
     Indication: Giant cell tumour of tendon sheath
     Dosage: 250 MG, BID
     Route: 065
     Dates: start: 20240717, end: 20250204

REACTIONS (1)
  - Treatment noncompliance [Unknown]
